FAERS Safety Report 24187961 (Version 2)
Quarter: 2024Q3

REPORT INFORMATION
  Report Type: Spontaneous
  Country: US (occurrence: US)
  Receive Date: 20240808
  Receipt Date: 20240906
  Transmission Date: 20241017
  Serious: No
  Sender: MYLAN
  Company Number: US-MYLANLABS-2024M1073187

PATIENT
  Age: 85 Year
  Sex: Male
  Weight: 84.82 kg

DRUGS (1)
  1. LIPITOR [Suspect]
     Active Substance: ATORVASTATIN CALCIUM
     Indication: Hypercholesterolaemia
     Dosage: UNK UNK, QD (EVERY DAY AT BED TIME)
     Route: 065

REACTIONS (5)
  - Feeling abnormal [Unknown]
  - Penile infection [Unknown]
  - Urinary tract infection [Unknown]
  - Vomiting [Unknown]
  - Therapy cessation [Unknown]
